FAERS Safety Report 11826467 (Version 1)
Quarter: 2015Q4

REPORT INFORMATION
  Report Type: Spontaneous
  Country: US (occurrence: None)
  Receive Date: 20151210
  Receipt Date: 20151210
  Transmission Date: 20160305
  Serious: Yes (Hospitalization)
  Sender: FDA-Public Use
  Company Number: None

PATIENT
  Age: 76 Year
  Sex: Female

DRUGS (1)
  1. TAFINLAR [Suspect]
     Active Substance: DABRAFENIB MESYLATE
     Indication: MALIGNANT MELANOMA
     Dosage: 2 TABLETS
     Route: 048
     Dates: start: 20150218

REACTIONS (2)
  - Blood sodium decreased [None]
  - White blood cell count decreased [None]

NARRATIVE: CASE EVENT DATE: 20151118
